FAERS Safety Report 6441491-4 (Version None)
Quarter: 2009Q4

REPORT INFORMATION
  Report Type: 
  Country: None (occurrence: None)
  Receive Date: 20091116
  Receipt Date: 20091112
  Transmission Date: 20100525
  Serious: Yes (Other)
  Sender: FDA-Public Use
  Company Number: B0591377A

PATIENT
  Sex: Female

DRUGS (5)
  1. AVAMYS [Suspect]
     Indication: DRUG USE FOR UNKNOWN INDICATION
     Route: 045
  2. OMEPRAZOLE [Concomitant]
     Route: 048
  3. SELOKEEN ZOC [Concomitant]
     Route: 048
  4. DICLOFENAC [Concomitant]
     Route: 065
  5. TELFAST [Concomitant]
     Route: 048

REACTIONS (1)
  - EXTRASYSTOLES [None]
